FAERS Safety Report 6756105-3 (Version None)
Quarter: 2010Q2

REPORT INFORMATION
  Report Type: 
  Country: None (occurrence: None)
  Receive Date: 20100524
  Receipt Date: 20100125
  Transmission Date: 20101027
  Serious: No
  Sender: FDA-Public Use
  Company Number: 005397

PATIENT
  Sex: Male

DRUGS (1)
  1. CIMZIA [Suspect]
     Indication: CROHN'S DISEASE
     Dosage: (SUBCUTANEOUS0
     Route: 058
     Dates: start: 20090703

REACTIONS (5)
  - ARTHRALGIA [None]
  - FATIGUE [None]
  - HAEMATOCRIT DECREASED [None]
  - JOINT STIFFNESS [None]
  - VITAMIN D DECREASED [None]
